FAERS Safety Report 25136874 (Version 1)
Quarter: 2025Q1

REPORT INFORMATION
  Report Type: Spontaneous
  Country: JP (occurrence: JP)
  Receive Date: 20250328
  Receipt Date: 20250328
  Transmission Date: 20250409
  Serious: Yes (Death)
  Sender: SHIONOGI
  Company Number: JP-shionogi-202500003353

PATIENT
  Age: 51 Year
  Sex: Female

DRUGS (4)
  1. CEFIDEROCOL [Suspect]
     Active Substance: CEFIDEROCOL
     Indication: Pseudomonal bacteraemia
     Route: 065
  2. CEFIDEROCOL [Suspect]
     Active Substance: CEFIDEROCOL
     Route: 065
  3. MEROPENEM [Concomitant]
     Active Substance: MEROPENEM
     Indication: Pseudomonal bacteraemia
     Route: 065
  4. CEFTOLOZANE SULFATE\TAZOBACTAM SODIUM [Concomitant]
     Active Substance: CEFTOLOZANE SULFATE\TAZOBACTAM SODIUM
     Indication: Pseudomonal bacteraemia
     Route: 065

REACTIONS (1)
  - Acute myocardial infarction [Fatal]
